FAERS Safety Report 23704942 (Version 1)
Quarter: 2024Q2

REPORT INFORMATION
  Report Type: Spontaneous
  Country: ES (occurrence: ES)
  Receive Date: 20240404
  Receipt Date: 20240404
  Transmission Date: 20240716
  Serious: Yes (Other)
  Sender: FDA-Public Use
  Company Number: ES-TEVA-2020-ES-1218771

PATIENT
  Age: 72 Year
  Sex: Female

DRUGS (6)
  1. DOCETAXEL [Suspect]
     Active Substance: DOCETAXEL\DOCETAXEL ANHYDROUS
     Indication: Breast cancer
     Dosage: 75 MILLIGRAM/SQ. METER (120 MG), AUC 5, 560MG (THERAPY WAS COMPLETED)
     Route: 065
  2. DOCETAXEL [Suspect]
     Active Substance: DOCETAXEL\DOCETAXEL ANHYDROUS
     Indication: Inflammatory carcinoma of breast stage III
  3. CARBOPLATIN [Suspect]
     Active Substance: CARBOPLATIN
     Indication: Breast cancer
     Dosage: 560 MILLIGRAM, AUC 5, (THERAPY WAS COMPLETED)
     Route: 065
  4. CARBOPLATIN [Suspect]
     Active Substance: CARBOPLATIN
     Indication: Inflammatory carcinoma of breast stage III
  5. TRASTUZUMAB [Suspect]
     Active Substance: TRASTUZUMAB
     Indication: Breast cancer
     Dosage: 6 MILLIGRAM/KILOGRAM, 6 MG/KG MAINTENANCE DOSE, EVERY 21 DAYS
     Route: 058
  6. TRASTUZUMAB [Suspect]
     Active Substance: TRASTUZUMAB
     Indication: Inflammatory carcinoma of breast stage III
     Dosage: 8 MILLIGRAM/KILOGRAM, LOADING DOSE, EVERY 21 DAYS (THERAPY WAS COMPLETED)
     Route: 058

REACTIONS (2)
  - Anaemia [Recovered/Resolved]
  - Incorrect route of product administration [Unknown]
